FAERS Safety Report 6148148-8 (Version None)
Quarter: 2009Q2

REPORT INFORMATION
  Report Type: 
  Country: None (occurrence: None)
  Receive Date: 20090402
  Receipt Date: 20090226
  Transmission Date: 20091009
  Serious: No
  Sender: FDA-Public Use
  Company Number: 1000004979

PATIENT
  Age: 54 Year
  Sex: Female

DRUGS (5)
  1. BYSTOLIC [Suspect]
     Indication: HEADACHE
     Dosage: 5 MG (5 MG, 1 IN 1 D), ORAL
     Route: 048
     Dates: start: 20090216, end: 20090222
  2. BYSTOLIC [Suspect]
     Indication: HEADACHE
     Dosage: 5 MG (5 MG, 1 IN 1 D), ORAL
     Route: 048
     Dates: start: 20090301
  3. DITROPAN [Concomitant]
  4. LEXAPRO [Concomitant]
  5. PREVACID [Concomitant]

REACTIONS (1)
  - MUSCLE SPASMS [None]
